FAERS Safety Report 13230105 (Version 1)
Quarter: 2017Q1

REPORT INFORMATION
  Report Type: Spontaneous
  Country: US (occurrence: US)
  Receive Date: 20170213
  Receipt Date: 20170213
  Transmission Date: 20170428
  Serious: Yes (Hospitalization)
  Sender: FDA-Public Use
  Company Number: None

PATIENT
  Age: 32 Year
  Sex: Female
  Weight: 52.65 kg

DRUGS (1)
  1. HYOSCYAMINE. [Suspect]
     Active Substance: HYOSCYAMINE
     Indication: ABDOMINAL PAIN
     Dosage: ?          QUANTITY:2 TABLET(S);?
     Route: 060
     Dates: start: 20160717, end: 20160718

REACTIONS (8)
  - Vision blurred [None]
  - Dry mouth [None]
  - Dizziness [None]
  - Suppressed lactation [None]
  - Confusional state [None]
  - Speech disorder [None]
  - Amnesia [None]
  - Hallucination [None]

NARRATIVE: CASE EVENT DATE: 20160718
